FAERS Safety Report 5743259-0 (Version None)
Quarter: 2008Q2

REPORT INFORMATION
  Report Type: 
  Country: None (occurrence: None)
  Receive Date: 20080519
  Receipt Date: 20080507
  Transmission Date: 20081010
  Serious: Yes (Hospitalization, Other)
  Sender: FDA-Public Use
  Company Number: BR-PFIZER INC-2007031163

PATIENT
  Sex: Male

DRUGS (2)
  1. SILDENAFIL CITRATE [Suspect]
     Indication: LUNG DISORDER
  2. ALL OTHER THERAPEUTIC PRODUCTS [Concomitant]

REACTIONS (13)
  - ABDOMINAL PAIN [None]
  - AREFLEXIA [None]
  - CEREBRAL DISORDER [None]
  - COELIAC DISEASE [None]
  - CRYING [None]
  - DEVELOPMENTAL DELAY [None]
  - GASTROOESOPHAGEAL REFLUX DISEASE [None]
  - GROWTH RETARDATION [None]
  - HEMIPARESIS [None]
  - INSOMNIA [None]
  - LACTOSE INTOLERANCE [None]
  - VIRAL INFECTION [None]
  - VOMITING [None]
